FAERS Safety Report 6988358-0 (Version None)
Quarter: 2010Q3

REPORT INFORMATION
  Report Type: 
  Country: None (occurrence: None)
  Receive Date: 20100830
  Receipt Date: 20100524
  Transmission Date: 20110219
  Serious: No
  Sender: FDA-Public Use
  Company Number: 2010046729

PATIENT
  Age: 75 Year
  Sex: Female
  Weight: 80 kg

DRUGS (1)
  1. TOVIAZ [Suspect]
     Indication: HYPERTONIC BLADDER
     Dosage: 4 MG, 1X/DAY,  ORAL
     Route: 048
     Dates: start: 20100202, end: 20100201

REACTIONS (1)
  - HEADACHE [None]
